FAERS Safety Report 21169681 (Version 2)
Quarter: 2022Q3

REPORT INFORMATION
  Report Type: Spontaneous
  Country: US (occurrence: US)
  Receive Date: 20220804
  Receipt Date: 20220906
  Transmission Date: 20221027
  Serious: No
  Sender: FDA-Public Use
  Company Number: US-ORGANON-O2207USA001952

PATIENT
  Age: 27 Year
  Sex: Female
  Weight: 58.957 kg

DRUGS (2)
  1. NEXPLANON [Suspect]
     Active Substance: ETONOGESTREL
     Dosage: 1 IMPLANT IN LEFT ARM
     Route: 059
     Dates: end: 20220708
  2. NEXPLANON [Suspect]
     Active Substance: ETONOGESTREL
     Dosage: 1 IMPLANT OF 68 MILLIGRAMS
     Dates: start: 20220708, end: 20220708

REACTIONS (2)
  - Vaginal cyst [Unknown]
  - Product quality issue [Unknown]

NARRATIVE: CASE EVENT DATE: 20220708
